FAERS Safety Report 23147611 (Version 1)
Quarter: 2023Q4

REPORT INFORMATION
  Report Type: Spontaneous
  Country: HR (occurrence: HR)
  Receive Date: 20231106
  Receipt Date: 20231106
  Transmission Date: 20240110
  Serious: Yes (Other)
  Sender: FDA-Public Use
  Company Number: None

PATIENT
  Age: 15 Year
  Sex: Female

DRUGS (3)
  1. EBASTINE [Suspect]
     Active Substance: EBASTINE
     Dosage: 4 TABLETS
     Route: 048
     Dates: start: 20230924, end: 20230924
  2. ACETAMINOPHEN [Suspect]
     Active Substance: ACETAMINOPHEN
     Dosage: 3 TABLETS
     Route: 048
     Dates: start: 20230924, end: 20230924
  3. SERTRALINE HYDROCHLORIDE [Suspect]
     Active Substance: SERTRALINE HYDROCHLORIDE
     Dosage: 4 TABLETS
     Route: 048
     Dates: start: 20230924, end: 20230924

REACTIONS (3)
  - Suicide attempt [Unknown]
  - Bradykinesia [Unknown]
  - Intentional overdose [Unknown]

NARRATIVE: CASE EVENT DATE: 20230924
